FAERS Safety Report 5002791-8 (Version None)
Quarter: 2006Q2

REPORT INFORMATION
  Report Type: 
  Country: None (occurrence: None)
  Receive Date: 20060516
  Receipt Date: 20060512
  Transmission Date: 20061013
  Serious: Yes (Death)
  Sender: FDA-Public Use
  Company Number: US-BRISTOL-MYERS SQUIBB COMPANY-13376256

PATIENT

DRUGS (1)
  1. COUMADIN [Suspect]

REACTIONS (1)
  - DEATH [None]
